FAERS Safety Report 9674549 (Version 1)
Quarter: 2013Q4

REPORT INFORMATION
  Report Type: Other
  Country: GB (occurrence: GB)
  Receive Date: 20131107
  Receipt Date: 20131107
  Transmission Date: 20140711
  Serious: Yes (Hospitalization)
  Sender: FDA-Public Use
  Company Number: GB-SUN PHARMACEUTICAL INDUSTRIES LTD-2013SUN04945

PATIENT
  Age: 82 Year
  Sex: Female

DRUGS (9)
  1. VENLAFAXINE HYDROCHLORIDE 25MG TABLET [Suspect]
     Indication: DEPRESSION
     Dosage: 150 MG, UNK
     Route: 048
  2. VENLAFAXINE HYDROCHLORIDE 25MG TABLET [Suspect]
     Dosage: UNK DOSE
     Route: 048
     Dates: end: 20131013
  3. PREGABALIN [Suspect]
     Indication: DEPRESSION
     Dosage: 200 MG, QD
     Route: 048
  4. PREGABALIN [Suspect]
     Dosage: DOSE INCREASED (UNK DOSE)
     Route: 048
  5. AMLODIPINE [Concomitant]
     Route: 065
  6. ATORVASTATIN [Concomitant]
     Route: 065
  7. DIAZEPAM [Concomitant]
     Route: 065
  8. RAMIPRIL [Concomitant]
     Route: 065
  9. ZOPICLONE [Concomitant]
     Route: 065

REACTIONS (8)
  - Poverty of speech [Unknown]
  - Mobility decreased [Recovering/Resolving]
  - Hypophagia [Recovering/Resolving]
  - Parkinsonism [Unknown]
  - Muscle rigidity [Unknown]
  - Tremor [Unknown]
  - Extrapyramidal disorder [Not Recovered/Not Resolved]
  - Dyskinesia [Unknown]
